FAERS Safety Report 4383827-4 (Version None)
Quarter: 2004Q2

REPORT INFORMATION
  Report Type: 
  Country: None (occurrence: None)
  Receive Date: 20040608
  Receipt Date: 20030903
  Transmission Date: 20050107
  Serious: Yes (Other)
  Sender: FDA-Public Use
  Company Number: 200313118BCC

PATIENT
  Age: 74 Year
  Sex: Male
  Weight: 95.2554 kg

DRUGS (13)
  1. ALEVE [Suspect]
     Indication: ARTHRALGIA
     Dosage: SEE IMAGE
     Route: 048
     Dates: end: 20030904
  2. ALEVE [Suspect]
     Indication: PAIN
     Dosage: SEE IMAGE
     Route: 048
     Dates: end: 20030904
  3. ALEVE [Suspect]
     Indication: ARTHRALGIA
     Dosage: SEE IMAGE
     Route: 048
     Dates: start: 20031001
  4. ALEVE [Suspect]
     Indication: PAIN
     Dosage: SEE IMAGE
     Route: 048
     Dates: start: 20031001
  5. . [Concomitant]
  6. FELODIPINE [Concomitant]
  7. ZOCOR [Concomitant]
  8. TRIAMTERENE [Concomitant]
  9. METOPROLOL [Concomitant]
  10. ZOPHERINE [Concomitant]
  11. CELEBREX [Concomitant]
  12. DIAZIDE [Concomitant]
  13. WARFARIN SODIUM [Concomitant]

REACTIONS (3)
  - BLOOD UREA INCREASED [None]
  - RENAL FAILURE CHRONIC [None]
  - RENAL IMPAIRMENT [None]
